FAERS Safety Report 11768693 (Version 6)
Quarter: 2018Q3

REPORT INFORMATION
  Report Type: Spontaneous
  Country: US (occurrence: FR)
  Receive Date: 20151123
  Receipt Date: 20180823
  Transmission Date: 20181010
  Serious: Yes (Hospitalization, Other)
  Sender: FDA-Public Use
  Company Number: FR-009507513-1511FRA011743

PATIENT
  Age: 11 Year
  Sex: Female

DRUGS (1)
  1. NOXAFIL [Suspect]
     Active Substance: POSACONAZOLE
     Dosage: 200 MG, BID
     Route: 048
     Dates: start: 20151009, end: 20151024

REACTIONS (5)
  - Medication error [Unknown]
  - Decreased appetite [Recovered/Resolved]
  - Oesophagitis [Recovered/Resolved]
  - Dysphagia [Recovered/Resolved]
  - Abdominal pain [Recovered/Resolved]

NARRATIVE: CASE EVENT DATE: 20151010
